FAERS Safety Report 8771878 (Version 3)
Quarter: 2015Q1

REPORT INFORMATION
  Report Type: Report from Study
  Country: US (occurrence: US)
  Receive Date: 20120905
  Receipt Date: 20150326
  Transmission Date: 20150721
  Serious: Yes (Death)
  Sender: FDA-Public Use
  Company Number: US-ROCHE-1113239

PATIENT
  Sex: Male

DRUGS (15)
  1. CARBOPLATIN. [Concomitant]
     Active Substance: CARBOPLATIN
  2. BUDEPRION [Concomitant]
     Active Substance: BUPROPION HYDROCHLORIDE
     Route: 065
  3. AVASTIN [Suspect]
     Active Substance: BEVACIZUMAB
     Indication: LUNG NEOPLASM MALIGNANT
     Route: 042
     Dates: start: 20081216
  4. NAVELBINE [Concomitant]
     Active Substance: VINORELBINE TARTRATE
     Route: 042
  5. TAXOTERE [Concomitant]
     Active Substance: DOCETAXEL
     Route: 065
     Dates: end: 20090106
  6. GEMZAR [Concomitant]
     Active Substance: GEMCITABINE HYDROCHLORIDE
  7. ALIMTA [Concomitant]
     Active Substance: PEMETREXED DISODIUM
     Route: 042
     Dates: end: 20081125
  8. VYTORIN [Concomitant]
     Active Substance: EZETIMIBE\SIMVASTATIN
     Route: 065
  9. FLOMAX (UNITED STATES) [Concomitant]
  10. TARCEVA [Suspect]
     Active Substance: ERLOTINIB HYDROCHLORIDE
     Indication: LUNG NEOPLASM MALIGNANT
     Route: 065
  11. TYLENOL #3 (UNITED STATES) [Concomitant]
  12. OXYCONTIN [Concomitant]
     Active Substance: OXYCODONE HYDROCHLORIDE
  13. AMIODARONE [Concomitant]
     Active Substance: AMIODARONE
     Route: 065
  14. CITALOPRAM [Concomitant]
     Active Substance: CITALOPRAM HYDROBROMIDE
     Route: 065
  15. BYSTOLIC [Concomitant]
     Active Substance: NEBIVOLOL HYDROCHLORIDE
     Dosage: 1/2 TABLET IN THE MORNING
     Route: 065

REACTIONS (13)
  - Off label use [Unknown]
  - Disease progression [Unknown]
  - Acquired diaphragmatic eventration [Unknown]
  - Confusional state [Recovered/Resolved]
  - Osteoarthritis [Unknown]
  - Pyrexia [Unknown]
  - Pneumonia [Unknown]
  - Constipation [Unknown]
  - Total lung capacity decreased [Unknown]
  - Death [Fatal]
  - Fatigue [Unknown]
  - Abdominal distension [Unknown]
  - Pleural fibrosis [Unknown]
